FAERS Safety Report 4882643-4 (Version None)
Quarter: 2006Q1

REPORT INFORMATION
  Report Type: 
  Country: None (occurrence: None)
  Receive Date: 20060117
  Receipt Date: 20060106
  Transmission Date: 20060701
  Serious: Yes (Other)
  Sender: FDA-Public Use
  Company Number: ES-MERCK-0601ESP00012

PATIENT
  Age: 33 Year
  Sex: Female

DRUGS (15)
  1. CRIXIVAN [Suspect]
     Indication: HIV INFECTION
     Route: 048
  2. CRIXIVAN [Suspect]
     Route: 048
  3. CRIXIVAN [Suspect]
     Route: 048
  4. CRIXIVAN [Suspect]
     Route: 048
  5. ZIDOVUDINE [Suspect]
     Indication: HIV INFECTION
     Route: 048
  6. ZIDOVUDINE [Suspect]
     Route: 048
  7. ZIDOVUDINE [Suspect]
     Route: 048
  8. ZIDOVUDINE [Suspect]
     Route: 048
  9. ZIDOVUDINE [Suspect]
     Route: 048
  10. LAMIVUDINE [Suspect]
     Indication: HIV INFECTION
     Route: 048
  11. DIDANOSINE [Suspect]
     Indication: HIV INFECTION
     Route: 048
  12. DIDANOSINE [Suspect]
     Route: 048
  13. DIDANOSINE [Suspect]
     Route: 048
  14. ABACAVIR SULFATE [Suspect]
     Indication: HIV INFECTION
     Route: 048
  15. NEVIRAPINE [Suspect]
     Indication: HIV INFECTION
     Route: 048

REACTIONS (4)
  - DRUG EXPOSURE DURING PREGNANCY [None]
  - PRE-ECLAMPSIA [None]
  - PREGNANCY [None]
  - PROTEINURIA [None]
